FAERS Safety Report 8267259-4 (Version None)
Quarter: 2012Q2

REPORT INFORMATION
  Report Type: 
  Country: None (occurrence: None)
  Receive Date: 20120404
  Receipt Date: 20120320
  Transmission Date: 20120825
  Serious: Yes (Other)
  Sender: FDA-Public Use
  Company Number: EU-2012-10101

PATIENT
  Age: 60 Year
  Sex: Male

DRUGS (8)
  1. LAMOTRIGINE [Concomitant]
  2. CILOSTAZOL [Suspect]
     Dates: start: 20111001, end: 20120101
  3. CLOPIDOGREL [Concomitant]
  4. LANSOPRAZOLE [Concomitant]
  5. SIMVASTATIN [Concomitant]
  6. RETIGABINE (RETIGABINE) [Suspect]
     Indication: CONVULSION
     Dosage: 50 MG MILLIGRAM(S), 200 MG MILLIGRAM(S), DAILY DOSE, 50 MG MILLIGRAM(S), TID,
     Dates: start: 20111201
  7. RETIGABINE (RETIGABINE) [Suspect]
     Indication: CONVULSION
     Dosage: 50 MG MILLIGRAM(S), 200 MG MILLIGRAM(S), DAILY DOSE, 50 MG MILLIGRAM(S), TID,
     Dates: start: 20111001
  8. RETIGABINE (RETIGABINE) [Suspect]
     Indication: CONVULSION
     Dosage: 50 MG MILLIGRAM(S), 200 MG MILLIGRAM(S), DAILY DOSE, 50 MG MILLIGRAM(S), TID,
     Dates: end: 20120301

REACTIONS (4)
  - MALAISE [None]
  - CONVULSION [None]
  - CONDITION AGGRAVATED [None]
  - VOMITING [None]
